FAERS Safety Report 6760305-6 (Version None)
Quarter: 2010Q2

REPORT INFORMATION
  Report Type: 
  Country: None (occurrence: None)
  Receive Date: 20100608
  Receipt Date: 20100604
  Transmission Date: 20101027
  Serious: Yes (Life-Threatening)
  Sender: FDA-Public Use
  Company Number: UA-B.I. PHARMACEUTICALS,INC./RIDGEFIELD-2010-AP-00291AP

PATIENT
  Age: 72 Year
  Sex: Female

DRUGS (1)
  1. MOVALIS [Suspect]
     Indication: RADICULITIS LUMBOSACRAL
     Dosage: 15 MG
     Route: 030
     Dates: start: 20100501, end: 20100601

REACTIONS (1)
  - BLOOD PRESSURE INCREASED [None]
